FAERS Safety Report 6569744-X (Version None)
Quarter: 2010Q1

REPORT INFORMATION
  Report Type: 
  Country: None (occurrence: None)
  Receive Date: 20100202
  Receipt Date: 20100202
  Transmission Date: 20100710
  Serious: Yes (Disabling, Other)
  Sender: FDA-Public Use
  Company Number: None

PATIENT
  Sex: Female
  Weight: 60.3284 kg

DRUGS (1)
  1. SEPTOCAINE [Suspect]
     Dates: start: 20091228

REACTIONS (6)
  - BURNING SENSATION [None]
  - EATING DISORDER [None]
  - HYPOAESTHESIA [None]
  - PAIN [None]
  - SLEEP DISORDER [None]
  - SPEECH DISORDER [None]
